FAERS Safety Report 7820180-5 (Version None)
Quarter: 2011Q4

REPORT INFORMATION
  Report Type: 
  Country: None (occurrence: None)
  Receive Date: 20111018
  Receipt Date: 20110928
  Transmission Date: 20120403
  Serious: Yes (Other)
  Sender: FDA-Public Use
  Company Number: US-PFIZER INC-2011246523

PATIENT
  Age: 15 Year
  Sex: Female

DRUGS (2)
  1. DEPO-PROVERA [Suspect]
     Indication: MENOMETRORRHAGIA
  2. DEPO-PROVERA [Suspect]
     Indication: OFF LABEL USE
     Route: 030

REACTIONS (1)
  - PSEUDOLYMPHOMA [None]
